FAERS Safety Report 6523869-3 (Version None)
Quarter: 2009Q4

REPORT INFORMATION
  Report Type: 
  Country: None (occurrence: None)
  Receive Date: 20091231
  Receipt Date: 20091222
  Transmission Date: 20100525
  Serious: Yes (Hospitalization)
  Sender: FDA-Public Use
  Company Number: US-ASTRAZENECA-2009SE33147

PATIENT
  Age: 37 Year
  Sex: Female
  Weight: 109.8 kg

DRUGS (5)
  1. NEXIUM [Suspect]
     Indication: GASTROOESOPHAGEAL REFLUX DISEASE
     Route: 048
     Dates: start: 20020101
  2. REGLAN [Concomitant]
  3. OMEPRAZOLE [Concomitant]
  4. FLAGYL [Concomitant]
  5. DOMPERIDONE [Concomitant]

REACTIONS (4)
  - ADRENAL MASS [None]
  - DIARRHOEA [None]
  - NAUSEA [None]
  - VOMITING [None]
